FAERS Safety Report 23237734 (Version 1)
Quarter: 2023Q4

REPORT INFORMATION
  Report Type: Spontaneous
  Country: SE (occurrence: SE)
  Receive Date: 20231128
  Receipt Date: 20231128
  Transmission Date: 20240110
  Serious: Yes (Death, Hospitalization, Other)
  Sender: FDA-Public Use
  Company Number: SE-BRISTOL-MYERS SQUIBB COMPANY-2023-170669

PATIENT
  Age: 94 Year

DRUGS (1)
  1. ELIQUIS [Suspect]
     Active Substance: APIXABAN
     Indication: Product used for unknown indication
     Dosage: 2.5 MG X2000

REACTIONS (3)
  - Pulmonary embolism [Fatal]
  - Hip fracture [Not Recovered/Not Resolved]
  - Bone cement implantation syndrome [Fatal]
